FAERS Safety Report 4964280-6 (Version None)
Quarter: 2006Q1

REPORT INFORMATION
  Report Type: 
  Country: None (occurrence: None)
  Receive Date: 20060331
  Receipt Date: 20060321
  Transmission Date: 20060701
  Serious: Yes (Other)
  Sender: FDA-Public Use
  Company Number: 163-20785-06030699

PATIENT

DRUGS (1)
  1. THALOMID [Suspect]
     Indication: SJOGREN'S SYNDROME
     Dosage: 50 MG TO A MAXIMUM DOSE OF 300 MG, DAILY, ORAL
     Route: 048

REACTIONS (6)
  - NEUROPATHY PERIPHERAL [None]
  - OEDEMA PERIPHERAL [None]
  - ORTHOSTATIC HYPOTENSION [None]
  - RASH [None]
  - SEDATION [None]
  - VASCULITIS [None]
